FAERS Safety Report 11126186 (Version 2)
Quarter: 2015Q2

REPORT INFORMATION
  Report Type: Spontaneous
  Country: US (occurrence: US)
  Receive Date: 20150520
  Receipt Date: 20150619
  Transmission Date: 20150821
  Serious: Yes (Hospitalization, Disabling, Other)
  Sender: FDA-Public Use
  Company Number: US-009507513-1202USA02286

PATIENT
  Sex: Female
  Weight: 53.52 kg

DRUGS (3)
  1. FOSAMAX [Suspect]
     Active Substance: ALENDRONATE SODIUM
     Dosage: 70 MG, QW
     Route: 048
     Dates: start: 20020430, end: 20090320
  2. FOSAMAX [Suspect]
     Active Substance: ALENDRONATE SODIUM
     Indication: OSTEOPOROSIS
     Dosage: 10 MG, QD
     Route: 048
     Dates: start: 20000804
  3. FOSAMAX [Suspect]
     Active Substance: ALENDRONATE SODIUM
     Indication: OSTEOPENIA
     Dosage: 5 MG, QD
     Route: 048
     Dates: start: 20000719

REACTIONS (38)
  - Intramedullary rod insertion [Unknown]
  - Pain [Unknown]
  - Fatigue [Unknown]
  - Femur fracture [Recovering/Resolving]
  - Surgery [Unknown]
  - Intraoperative cerebral artery occlusion [Unknown]
  - Back pain [Not Recovered/Not Resolved]
  - Cerebral infarction [Unknown]
  - Muscular weakness [Unknown]
  - Hypotension [Unknown]
  - Urge incontinence [Unknown]
  - Nocturia [Unknown]
  - Spinal fusion surgery [Unknown]
  - Spinal fusion surgery [Unknown]
  - Peripheral swelling [Unknown]
  - Fall [Unknown]
  - Hypercholesterolaemia [Unknown]
  - Headache [Unknown]
  - Arthralgia [Unknown]
  - Procedural complication [Unknown]
  - Intervertebral disc degeneration [Unknown]
  - Amnesia [Unknown]
  - Malaise [Unknown]
  - Cognitive disorder [Recovering/Resolving]
  - Oedema [Unknown]
  - Pain in extremity [Unknown]
  - Brain injury [Unknown]
  - Hypoaesthesia [Unknown]
  - Spinal column stenosis [Unknown]
  - Kyphoscoliosis [Not Recovered/Not Resolved]
  - Spinal laminectomy [Unknown]
  - Musculoskeletal discomfort [Unknown]
  - Back injury [Unknown]
  - Limb injury [Unknown]
  - Ecchymosis [Unknown]
  - Skin atrophy [Unknown]
  - Muscle spasms [Unknown]
  - Constipation [Unknown]

NARRATIVE: CASE EVENT DATE: 20031006
